FAERS Safety Report 7428877-6 (Version None)
Quarter: 2011Q2

REPORT INFORMATION
  Report Type: 
  Country: None (occurrence: None)
  Receive Date: 20110412
  Receipt Date: 20110328
  Transmission Date: 20111010
  Serious: Yes (Death, Other)
  Sender: FDA-Public Use
  Company Number: JP-2011-10539

PATIENT
  Age: 79 Year
  Sex: Female

DRUGS (3)
  1. SAMSCA [Suspect]
     Dosage: 3.75 MG MILLIGRAM(S), QD, ORAL
     Route: 048
     Dates: start: 20110317, end: 20110319
  2. ALDATONE A (SPIRONOLACTONE) [Concomitant]
  3. LASIX [Concomitant]

REACTIONS (2)
  - CONDUCTION DISORDER [None]
  - VENTRICULAR FIBRILLATION [None]
